FAERS Safety Report 7738786-0 (Version None)
Quarter: 2011Q3

REPORT INFORMATION
  Report Type: 
  Country: None (occurrence: None)
  Receive Date: 20110908
  Receipt Date: 20110826
  Transmission Date: 20111222
  Serious: Yes (Hospitalization)
  Sender: FDA-Public Use
  Company Number: US-MYLANLABS-2011S1018201

PATIENT
  Age: 65 Year
  Sex: Male

DRUGS (11)
  1. BENAZEPRIL HYDROCHLORIDE [Concomitant]
     Route: 065
  2. PHENYTOIN [Concomitant]
     Route: 065
  3. AMLODIPINE [Concomitant]
     Route: 065
  4. HYDRALAZINE HCL [Concomitant]
     Route: 065
  5. GLIPIZIDE [Concomitant]
     Route: 065
  6. ASPIRIN [Concomitant]
     Route: 065
  7. LEVOTHYROXINE SODIUM [Concomitant]
     Route: 065
  8. ACYCLOVIR [Suspect]
     Indication: HERPES ZOSTER
     Dosage: 500MG OF 800MG-PILLS FIVE TIMES DAILY
     Route: 048
  9. SIMVASTATIN [Concomitant]
     Route: 065
  10. LASIX [Concomitant]
     Route: 065
  11. CALCIUM CARBONATE [Concomitant]
     Route: 065

REACTIONS (2)
  - TOXICITY TO VARIOUS AGENTS [None]
  - MENTAL STATUS CHANGES [None]
